FAERS Safety Report 8425469-7 (Version None)
Quarter: 2012Q2

REPORT INFORMATION
  Report Type: 
  Country: None (occurrence: None)
  Receive Date: 20120611
  Receipt Date: 20120529
  Transmission Date: 20120825
  Serious: Yes (Hospitalization)
  Sender: FDA-Public Use
  Company Number: JP-ELI_LILLY_AND_COMPANY-JP201205010428

PATIENT
  Age: 31 Year
  Sex: Female
  Weight: 47 kg

DRUGS (14)
  1. TADALAFIL [Suspect]
     Indication: PULMONARY ARTERIAL HYPERTENSION
     Dosage: 20 MG, QD
     Route: 048
     Dates: start: 20110215, end: 20110228
  2. ALDACTONE [Concomitant]
     Indication: PULMONARY ARTERIAL HYPERTENSION
     Dosage: UNK
     Route: 048
  3. FLORAN [Concomitant]
     Indication: PULMONARY ARTERIAL HYPERTENSION
     Dosage: 75.4 MG/KG, OTHER
     Route: 042
     Dates: start: 20020401
  4. LASIX [Concomitant]
     Indication: PULMONARY ARTERIAL HYPERTENSION
     Dosage: UNK
     Route: 048
  5. CEFAZOLIN SODIUM [Concomitant]
     Indication: DIARRHOEA
     Dosage: UNK
     Route: 048
  6. LANIRAPID [Concomitant]
     Indication: PULMONARY ARTERIAL HYPERTENSION
     Dosage: UNK
     Route: 048
  7. ALLOPURINOL [Concomitant]
     Indication: HYPERURICAEMIA
     Dosage: UNK
     Route: 048
  8. RABEPRAZOLE SODIUM [Concomitant]
     Dosage: UNK
     Route: 048
  9. TALION [Concomitant]
     Indication: RASH
     Dosage: UNK
     Route: 048
  10. AMLODIPINE [Concomitant]
     Indication: PULMONARY ARTERIAL HYPERTENSION
     Dosage: UNK
     Route: 048
  11. REVATIO [Concomitant]
     Indication: PULMONARY ARTERIAL HYPERTENSION
     Dosage: UNK
     Dates: start: 20090629, end: 20110215
  12. TRICHLORMETHIAZIDE [Concomitant]
     Indication: PULMONARY ARTERIAL HYPERTENSION
     Dosage: UNK
     Route: 048
  13. LOPEMIN [Concomitant]
     Indication: DIARRHOEA
     Dosage: UNK
     Route: 048
  14. FERRUM [Concomitant]
     Indication: ANAEMIA
     Dosage: UNK
     Route: 048

REACTIONS (4)
  - GENERALISED ERYTHEMA [None]
  - NAUSEA [None]
  - VOMITING [None]
  - HEADACHE [None]
